FAERS Safety Report 4592206-6 (Version None)
Quarter: 2005Q1

REPORT INFORMATION
  Report Type: 
  Country: None (occurrence: None)
  Receive Date: 20050228
  Receipt Date: 20050216
  Transmission Date: 20050727
  Serious: Yes (Other)
  Sender: FDA-Public Use
  Company Number: US-JNJFOC-20050205233

PATIENT
  Sex: Male

DRUGS (2)
  1. REMICADE [Suspect]
     Indication: RHEUMATOID ARTHRITIS
     Dosage: EVERY 8 WEEKS
     Route: 042
  2. COLCHICINE [Concomitant]

REACTIONS (3)
  - FALL [None]
  - FEMUR FRACTURE [None]
  - HIP FRACTURE [None]
